FAERS Safety Report 7552318-1 (Version None)
Quarter: 2011Q2

REPORT INFORMATION
  Report Type: 
  Country: None (occurrence: None)
  Receive Date: 20110616
  Receipt Date: 20050601
  Transmission Date: 20111010
  Serious: Yes (Hospitalization, Other)
  Sender: FDA-Public Use
  Company Number: PHHO2005CL08735

PATIENT
  Sex: Female

DRUGS (1)
  1. VALSARTAN [Suspect]
     Dosage: 80 MG, UNK
     Route: 048

REACTIONS (1)
  - NEOPLASM MALIGNANT [None]
